FAERS Safety Report 25172281 (Version 3)
Quarter: 2025Q2

REPORT INFORMATION
  Report Type: Spontaneous
  Country: IT (occurrence: IT)
  Receive Date: 20250408
  Receipt Date: 20250423
  Transmission Date: 20250717
  Serious: Yes (Other)
  Sender: AUROBINDO
  Company Number: IT-AUROBINDO-AUR-APL-2025-018790

PATIENT
  Age: 35 Year
  Sex: Female

DRUGS (12)
  1. AMLODIPINE [Suspect]
     Active Substance: AMLODIPINE BESYLATE
     Indication: Blood pressure abnormal
     Route: 065
  2. AMLODIPINE [Suspect]
     Active Substance: AMLODIPINE BESYLATE
     Indication: Hypertension
  3. FUROSEMIDE [Suspect]
     Active Substance: FUROSEMIDE
     Indication: Blood pressure abnormal
     Route: 065
  4. FUROSEMIDE [Suspect]
     Active Substance: FUROSEMIDE
     Indication: Hypertension
  5. NEBIVOLOL [Suspect]
     Active Substance: NEBIVOLOL
     Indication: Blood pressure abnormal
     Route: 065
  6. NEBIVOLOL [Suspect]
     Active Substance: NEBIVOLOL
     Indication: Hypertension
  7. CLONIDINE [Suspect]
     Active Substance: CLONIDINE
     Indication: Blood pressure abnormal
     Route: 065
  8. CLONIDINE [Suspect]
     Active Substance: CLONIDINE
     Indication: Hypertension
  9. URAPIDIL [Suspect]
     Active Substance: URAPIDIL
     Indication: Blood pressure abnormal
     Route: 065
  10. URAPIDIL [Suspect]
     Active Substance: URAPIDIL
     Indication: Hypertension
  11. EPLERENONE [Suspect]
     Active Substance: EPLERENONE
     Indication: Blood pressure abnormal
     Route: 065
  12. EPLERENONE [Suspect]
     Active Substance: EPLERENONE
     Indication: Hypertension

REACTIONS (2)
  - Scleroderma renal crisis [Unknown]
  - Drug ineffective [Unknown]
